FAERS Safety Report 17458913 (Version 1)
Quarter: 2020Q1

REPORT INFORMATION
  Report Type: Spontaneous
  Country: US (occurrence: US)
  Receive Date: 20200212
  Receipt Date: 20200212
  Transmission Date: 20200409
  Serious: Yes (Hospitalization, Disabling, Other)
  Sender: FDA-Public Use
  Company Number: None

PATIENT
  Age: 63 Year
  Sex: Male
  Weight: 87.54 kg

DRUGS (7)
  1. OLANZAPINE. [Suspect]
     Active Substance: OLANZAPINE
  2. TRAZODONE [Suspect]
     Active Substance: TRAZODONE HYDROCHLORIDE
  3. SEROQUEL [Suspect]
     Active Substance: QUETIAPINE FUMARATE
  4. RISPERDAL [Suspect]
     Active Substance: RISPERIDONE
     Indication: MENTAL DISORDER
     Dosage: ?          QUANTITY:INJECTION ONCE A M;?
     Route: 048
     Dates: start: 20021228
  5. ABILIFY [Suspect]
     Active Substance: ARIPIPRAZOLE
  6. ARISTADA [Suspect]
     Active Substance: ARIPIPRAZOLE LAUROXIL
  7. KLONOPIN [Suspect]
     Active Substance: CLONAZEPAM

REACTIONS (4)
  - Psychotic disorder [None]
  - Musculoskeletal stiffness [None]
  - Tardive dyskinesia [None]
  - Folliculitis [None]
